FAERS Safety Report 7673681-7 (Version None)
Quarter: 2011Q3

REPORT INFORMATION
  Report Type: 
  Country: None (occurrence: None)
  Receive Date: 20110810
  Receipt Date: 20110727
  Transmission Date: 20111222
  Serious: Yes (Hospitalization)
  Sender: FDA-Public Use
  Company Number: CA-TYCO HEALTHCARE/MALLINCKRODT-T201101482

PATIENT
  Age: 45 Year
  Sex: Female

DRUGS (2)
  1. OXYCET [Suspect]
     Indication: BACK PAIN
     Dosage: 325/5 MG, QID
  2. FENTANYL-100 [Suspect]
     Indication: BACK PAIN
     Dosage: 175 MCG/HR, Q 48 H
     Route: 062

REACTIONS (1)
  - ADRENAL INSUFFICIENCY [None]
